FAERS Safety Report 10953778 (Version 2)
Quarter: 2015Q1

REPORT INFORMATION
  Report Type: Spontaneous
  Country: US (occurrence: None)
  Receive Date: 20150226
  Receipt Date: 20150226
  Transmission Date: 20150721
  Serious: No
  Sender: FDA-Public Use
  Company Number: TPA2010A00684

PATIENT
  Age: 61 Year
  Sex: Female
  Weight: 51.71 kg

DRUGS (9)
  1. LORAZEPAM. [Concomitant]
     Active Substance: LORAZEPAM
  2. COLCHICINE. [Concomitant]
     Active Substance: COLCHICINE
  3. SODIUM BICARBONATE (ALL OTHER THERAPEUTIC PRODUCTS) [Concomitant]
  4. FUROSEMIDE. [Concomitant]
     Active Substance: FUROSEMIDE
  5. ULORIC [Suspect]
     Active Substance: FEBUXOSTAT
     Indication: GOUTY TOPHUS
     Route: 048
     Dates: start: 20091110, end: 20091114
  6. ZOCOR [Concomitant]
     Active Substance: SIMVASTATIN
  7. PROCRIT (ERYTHROPOIETIN) [Concomitant]
  8. ROCALTROL (CALCITRIOL) [Concomitant]
  9. DIOVAN [Concomitant]
     Active Substance: VALSARTAN

REACTIONS (3)
  - Rash [None]
  - Pyrexia [None]
  - Rash pruritic [None]

NARRATIVE: CASE EVENT DATE: 20091114
